FAERS Safety Report 5268604-4 (Version None)
Quarter: 2007Q1

REPORT INFORMATION
  Report Type: 
  Country: None (occurrence: None)
  Receive Date: 20070315
  Receipt Date: 20070315
  Transmission Date: 20070707
  Serious: Yes (Other)
  Sender: FDA-Public Use
  Company Number: None

PATIENT
  Sex: Female
  Weight: 63.5036 kg

DRUGS (2)
  1. CYMBALTA [Suspect]
     Indication: DEPRESSION
     Dosage: 30 MG DAILY PO 60MG DAILY PO
     Route: 048
     Dates: start: 20070227, end: 20070305
  2. CYMBALTA [Suspect]
     Indication: DEPRESSION
     Dosage: 30 MG DAILY PO 60MG DAILY PO
     Route: 048
     Dates: start: 20070306, end: 20070307

REACTIONS (6)
  - BLOOD CHOLESTEROL INCREASED [None]
  - CHROMATURIA [None]
  - HEPATIC ENZYME INCREASED [None]
  - HEPATOCELLULAR DAMAGE [None]
  - PAIN IN EXTREMITY [None]
  - PRURITUS [None]
